FAERS Safety Report 4299583-4 (Version None)
Quarter: 2004Q1

REPORT INFORMATION
  Report Type: 
  Country: None (occurrence: None)
  Receive Date: 20040217
  Receipt Date: 20040203
  Transmission Date: 20041129
  Serious: Yes (Hospitalization)
  Sender: FDA-Public Use
  Company Number: 04P-144-0249477-00

PATIENT
  Age: 71 Year
  Sex: Female
  Weight: 75 kg

DRUGS (2)
  1. DEPAKENE [Suspect]
     Indication: CONVULSION
     Dosage: 500 MG, 3 IN 1 D;  1200 MG, ONCE, INTRAVENOUS
     Route: 042
  2. MEROPENEM (MEROPENEM) [Suspect]
     Indication: CONVULSION
     Dosage: 1000 MG, 3 IN 1 D, INTRAVENOUS
     Route: 042

REACTIONS (5)
  - ANTICONVULSANT DRUG LEVEL DECREASED [None]
  - ANTICONVULSANT DRUG LEVEL INCREASED [None]
  - DRUG INTERACTION [None]
  - PNEUMONIA [None]
  - SIMPLE PARTIAL SEIZURES [None]
